FAERS Safety Report 8171548-1 (Version None)
Quarter: 2012Q1

REPORT INFORMATION
  Report Type: 
  Country: None (occurrence: None)
  Receive Date: 20120228
  Receipt Date: 20120223
  Transmission Date: 20120608
  Serious: Yes (Other)
  Sender: FDA-Public Use
  Company Number: US-PFIZER INC-2012030599

PATIENT
  Sex: Female
  Weight: 16.327 kg

DRUGS (1)
  1. EPIPEN [Suspect]
     Dosage: 0.3 ML, UNK
     Dates: start: 20120112, end: 20120112

REACTIONS (2)
  - INJURY ASSOCIATED WITH DEVICE [None]
  - ACCIDENTAL EXPOSURE [None]
